FAERS Safety Report 6161721-6 (Version None)
Quarter: 2009Q2

REPORT INFORMATION
  Report Type: 
  Country: None (occurrence: None)
  Receive Date: 20090417
  Receipt Date: 20090417
  Transmission Date: 20091009
  Serious: No
  Sender: FDA-Public Use
  Company Number: None

PATIENT
  Sex: Female
  Weight: 75.45 kg

DRUGS (28)
  1. LEVOFLOXACIN [Suspect]
     Dosage: 500MG TABLET 500 MG QD ORAL
     Route: 048
     Dates: start: 20090413, end: 20090417
  2. ADVAIR HFA [Concomitant]
  3. ATIVAN [Concomitant]
  4. BACLOFEN [Concomitant]
  5. BACTROBAN NASAL OINTMENT [Concomitant]
  6. CONVATEC [Concomitant]
  7. COZAAR [Concomitant]
  8. DILTIAZEM [Concomitant]
  9. EAKINE COHESIVE SEALS [Concomitant]
  10. ERGOCALCIFEROL [Concomitant]
  11. FLUOCINONIDE [Concomitant]
  12. HYDROCHLOROTHIAZIDE [Concomitant]
  13. HOLLISTER FLANGES [Concomitant]
  14. LOMOTIL [Concomitant]
  15. METROCREAM [Concomitant]
  16. NEXIUM [Concomitant]
  17. NORTRIPTYLINE HCL [Concomitant]
  18. POTASSIUM CHLORIDE POWDER [Concomitant]
  19. PROVENTIL-HFA [Concomitant]
  20. SINGULAIR [Concomitant]
  21. SQUIBB STOMAHESIVE POWDER [Concomitant]
  22. SURE-FIT NATURA DRAINABLE POUCH [Concomitant]
  23. SYNTHROID [Concomitant]
  24. TAPAZOLE [Concomitant]
  25. TRIAMCINOLONE [Concomitant]
  26. VALISONE [Concomitant]
  27. VICODIN [Concomitant]
  28. VITAMIN B COMPLEX CAP [Concomitant]

REACTIONS (1)
  - ABDOMINAL PAIN [None]
